FAERS Safety Report 4882070-X (Version None)
Quarter: 2006Q1

REPORT INFORMATION
  Report Type: 
  Country: None (occurrence: None)
  Receive Date: 20060117
  Receipt Date: 20050112
  Transmission Date: 20060701
  Serious: Yes (Hospitalization, Other)
  Sender: FDA-Public Use
  Company Number: US-MERCK-0501USA02343

PATIENT
  Age: 59 Year
  Sex: Female
  Weight: 84 kg

DRUGS (2)
  1. VIOXX [Suspect]
     Indication: ARTHRALGIA
     Route: 048
     Dates: start: 20010901, end: 20040501
  2. VIOXX [Suspect]
     Route: 048
     Dates: start: 20010901, end: 20040501

REACTIONS (7)
  - ANEURYSM [None]
  - ARTHROPATHY [None]
  - HIP SURGERY [None]
  - HYSTERECTOMY [None]
  - PULMONARY EMBOLISM [None]
  - THROMBOSIS [None]
  - UTERINE DISORDER [None]
